FAERS Safety Report 10146955 (Version 6)
Quarter: 2016Q1

REPORT INFORMATION
  Report Type: Spontaneous
  Country: US (occurrence: US)
  Receive Date: 20140501
  Receipt Date: 20160307
  Transmission Date: 20160525
  Serious: Yes (Hospitalization, Other)
  Sender: FDA-Public Use
  Company Number: US-GLAXOSMITHKLINE-A1070813A

PATIENT
  Age: 71 Year
  Sex: Female

DRUGS (8)
  1. SYNTHROID [Concomitant]
     Active Substance: LEVOTHYROXINE SODIUM
  2. CIPRO [Concomitant]
     Active Substance: CIPROFLOXACIN HYDROCHLORIDE
  3. FUROSEMIDE. [Concomitant]
     Active Substance: FUROSEMIDE
  4. TYLENOL PM [Suspect]
     Active Substance: ACETAMINOPHEN\DIPHENHYDRAMINE
     Indication: PAIN
  5. DIGOXIN. [Concomitant]
     Active Substance: DIGOXIN
  6. WARFARIN [Concomitant]
     Active Substance: WARFARIN
  7. ESTRADIOL. [Concomitant]
     Active Substance: ESTRADIOL
  8. COREG [Suspect]
     Active Substance: CARVEDILOL
     Indication: CARDIAC FAILURE CONGESTIVE
     Dosage: 25 MG, BID
     Route: 048
     Dates: start: 2005

REACTIONS (14)
  - Feeling abnormal [Unknown]
  - Product substitution issue [Unknown]
  - Musculoskeletal pain [Unknown]
  - Crying [Unknown]
  - Sinus disorder [Unknown]
  - Sinusitis [Unknown]
  - Incorrect dosage administered [Unknown]
  - Cardiac operation [Recovered/Resolved]
  - Malaise [Unknown]
  - Sleep disorder due to a general medical condition [Unknown]
  - Fall [Unknown]
  - Performance status decreased [Unknown]
  - Nasal operation [Unknown]
  - Joint injury [Unknown]

NARRATIVE: CASE EVENT DATE: 20140212
